FAERS Safety Report 25100587 (Version 1)
Quarter: 2025Q1

REPORT INFORMATION
  Report Type: Spontaneous
  Country: JP (occurrence: JP)
  Receive Date: 20250320
  Receipt Date: 20250320
  Transmission Date: 20250409
  Serious: Yes (Death)
  Sender: OTSUKA
  Company Number: JP-MMM-Otsuka-0FVZQ68Y

PATIENT
  Age: 93 Year
  Sex: Male

DRUGS (2)
  1. REXULTI [Suspect]
     Active Substance: BREXPIPRAZOLE
     Indication: Dementia Alzheimer^s type
     Route: 048
     Dates: start: 20241202
  2. REXULTI [Suspect]
     Active Substance: BREXPIPRAZOLE
     Indication: Aggression

REACTIONS (1)
  - Marasmus [Fatal]
